FAERS Safety Report 6759300-2 (Version None)
Quarter: 2010Q2

REPORT INFORMATION
  Report Type: 
  Country: None (occurrence: None)
  Receive Date: 20100607
  Receipt Date: 20100528
  Transmission Date: 20101027
  Serious: Yes (Other)
  Sender: FDA-Public Use
  Company Number: US-PFIZER INC-2010068217

PATIENT
  Sex: Female
  Weight: 59 kg

DRUGS (1)
  1. SOLU-MEDROL [Suspect]
     Indication: RASH
     Dosage: 125 MG INJECTION
     Dates: start: 20100528

REACTIONS (3)
  - HYPOAESTHESIA [None]
  - MOVEMENT DISORDER [None]
  - PAIN IN EXTREMITY [None]
